FAERS Safety Report 12083978 (Version 1)
Quarter: 2016Q1

REPORT INFORMATION
  Report Type: Spontaneous
  Country: US (occurrence: None)
  Receive Date: 20160216
  Receipt Date: 20160216
  Transmission Date: 20160526
  Serious: Yes (Life-Threatening, Hospitalization)
  Sender: FDA-Public Use
  Company Number: None

PATIENT
  Age: 27 Year
  Sex: Male
  Weight: 89.7 kg

DRUGS (2)
  1. PREDNISON [Concomitant]
     Active Substance: PREDNISONE
  2. INVOKAMET [Suspect]
     Active Substance: CANAGLIFLOZIN\METFORMIN HYDROCHLORIDE
     Indication: TYPE 2 DIABETES MELLITUS
     Route: 048
     Dates: start: 20160101, end: 20160209

REACTIONS (5)
  - Metabolic acidosis [None]
  - Lipase increased [None]
  - Nausea [None]
  - Glucose urine present [None]
  - Vomiting [None]

NARRATIVE: CASE EVENT DATE: 20160209
